FAERS Safety Report 8340528 (Version 3)
Quarter: 2015Q1

REPORT INFORMATION
  Report Type: Report from Study
  Country: US (occurrence: US)
  Receive Date: 20120117
  Receipt Date: 20150223
  Transmission Date: 20150721
  Serious: Yes (Death)
  Sender: FDA-Public Use
  Company Number: US-ROCHE-1028636

PATIENT
  Sex: Male

DRUGS (23)
  1. MOBIC [Concomitant]
     Active Substance: MELOXICAM
     Route: 048
  2. FLOMAX (UNITED STATES) [Concomitant]
     Route: 048
  3. OXALIPLATIN. [Concomitant]
     Active Substance: OXALIPLATIN
     Route: 042
  4. PANCREASE MT [Concomitant]
     Active Substance: PANCRELIPASE
     Route: 048
  5. KEFLEX [Concomitant]
     Active Substance: CEPHALEXIN
     Route: 048
  6. AVASTIN [Suspect]
     Active Substance: BEVACIZUMAB
     Indication: GASTRIC CANCER
     Dosage: 12/NOV/2009, 02/DEC/2009, 23/DEC/2009, 13/JAN/2010, 03/FEB/2010, 24/FEB/2010, 24/MAR/2010, 14/APR/20
     Route: 042
     Dates: start: 20091103
  7. TOPROL XL [Concomitant]
     Active Substance: METOPROLOL SUCCINATE
     Route: 048
  8. CILOSTAZOL. [Concomitant]
     Active Substance: CILOSTAZOL
     Route: 048
  9. ATIVAN [Concomitant]
     Active Substance: LORAZEPAM
     Route: 042
  10. XELODA [Concomitant]
     Active Substance: CAPECITABINE
     Dosage: 6 TABLETS MORNING, 5 TABLETS EVENING DAILY, 500MG TWICE A DAY
     Route: 048
  11. PROMETHAZINE HCL [Concomitant]
     Active Substance: PROMETHAZINE HYDROCHLORIDE
     Route: 048
  12. B-12 ACTIVE [Concomitant]
     Route: 042
  13. ZOFRAN [Concomitant]
     Active Substance: ONDANSETRON HYDROCHLORIDE
     Route: 048
  14. OXALIPLATIN. [Concomitant]
     Active Substance: OXALIPLATIN
     Route: 042
  15. ALOXI [Concomitant]
     Active Substance: PALONOSETRON HYDROCHLORIDE
     Route: 042
  16. DECADRON [Concomitant]
     Active Substance: DEXAMETHASONE
     Route: 042
  17. EPIRUBICIN [Concomitant]
     Active Substance: EPIRUBICIN
     Route: 042
  18. ADRIAMYCIN [Concomitant]
     Active Substance: DOXORUBICIN HYDROCHLORIDE
     Route: 042
  19. RAPAFLO [Concomitant]
     Active Substance: SILODOSIN
     Route: 048
  20. AVASTIN [Suspect]
     Active Substance: BEVACIZUMAB
     Indication: METASTASES TO LIVER
     Dosage: 09/SEP/2010
     Route: 042
     Dates: start: 20100813
  21. KAPIDEX [Concomitant]
     Active Substance: DEXLANSOPRAZOLE
     Route: 065
  22. ALLOPURINOL. [Concomitant]
     Active Substance: ALLOPURINOL
     Route: 048
  23. OXALIPLATIN. [Concomitant]
     Active Substance: OXALIPLATIN
     Route: 042

REACTIONS (5)
  - Neuropathy peripheral [Unknown]
  - Decreased appetite [Unknown]
  - Nocturia [Unknown]
  - Haemorrhage [Unknown]
  - Gastric cancer [Fatal]
